FAERS Safety Report 9585737 (Version 1)
Quarter: 2013Q4

REPORT INFORMATION
  Report Type: Spontaneous
  Country: US (occurrence: None)
  Receive Date: 20131002
  Receipt Date: 20131002
  Transmission Date: 20140711
  Serious: Yes (Other)
  Sender: FDA-Public Use
  Company Number: None

PATIENT
  Age: 76 Year
  Sex: Female
  Weight: 79.83 kg

DRUGS (2)
  1. DUREZOL [Suspect]
     Indication: CATARACT OPERATION
     Dosage: 2 DROP BOTH EYES EVERY TWO HOURS
     Dates: start: 20130419, end: 20130822
  2. ZYMAXID [Suspect]
     Indication: CATARACT OPERATION
     Dosage: 1 DROP PER EYE EVERY 2 HRS
     Dates: start: 20130419, end: 20130422

REACTIONS (3)
  - Cataract operation complication [None]
  - Retinal detachment [None]
  - Visual acuity reduced [None]
